FAERS Safety Report 8272973-0 (Version None)
Quarter: 2012Q2

REPORT INFORMATION
  Report Type: 
  Country: None (occurrence: None)
  Receive Date: 20120411
  Receipt Date: 20120330
  Transmission Date: 20120825
  Serious: Yes (Hospitalization, Other)
  Sender: FDA-Public Use
  Company Number: US-JNJFOC-20120206019

PATIENT
  Sex: Female

DRUGS (5)
  1. ANTIDEPRESSANTS [Suspect]
     Indication: PRODUCT USED FOR UNKNOWN INDICATION
     Route: 065
  2. RISPERIDONE [Suspect]
     Indication: SCHIZOAFFECTIVE DISORDER
     Route: 048
  3. RISPERDAL [Suspect]
     Indication: SCHIZOAFFECTIVE DISORDER
     Route: 048
     Dates: end: 20110301
  4. RISPERDAL [Suspect]
     Route: 048
     Dates: start: 20110301, end: 20110301
  5. LITHIUM CARBONATE [Concomitant]
     Indication: SCHIZOAFFECTIVE DISORDER
     Route: 065

REACTIONS (12)
  - HOSPITALISATION [None]
  - OVERDOSE [None]
  - PSYCHOTIC DISORDER [None]
  - ADVERSE EVENT [None]
  - DELUSION [None]
  - RESPIRATORY DISORDER [None]
  - DIZZINESS [None]
  - POST-TRAUMATIC STRESS DISORDER [None]
  - PREMENSTRUAL SYNDROME [None]
  - FALL [None]
  - DRUG HYPERSENSITIVITY [None]
  - THERAPY CESSATION [None]
